FAERS Safety Report 7318381-8 (Version None)
Quarter: 2011Q1

REPORT INFORMATION
  Report Type: 
  Country: None (occurrence: None)
  Receive Date: 20110218
  Receipt Date: 20110218
  Transmission Date: 20110831
  Serious: Yes (Other)
  Sender: FDA-Public Use
  Company Number: None

PATIENT
  Age: 50 Year
  Sex: Male

DRUGS (2)
  1. ZOSYN [Suspect]
     Indication: BACTERIAL INFECTION
     Dosage: 3.375 GM Q8HR IV
     Route: 042
     Dates: start: 20101207, end: 20101209
  2. ZOSYN [Suspect]
     Indication: EVIDENCE BASED TREATMENT
     Dosage: 3.375 GM Q8HR IV
     Route: 042
     Dates: start: 20101207, end: 20101209

REACTIONS (7)
  - EOSINOPHILIA [None]
  - LIVER FUNCTION TEST ABNORMAL [None]
  - PYREXIA [None]
  - CONDITION AGGRAVATED [None]
  - PRODUCT QUALITY ISSUE [None]
  - RASH GENERALISED [None]
  - DRUG HYPERSENSITIVITY [None]
